FAERS Safety Report 13158538 (Version 2)
Quarter: 2017Q1

REPORT INFORMATION
  Report Type: Report from Study
  Country: GB (occurrence: GB)
  Receive Date: 20170127
  Receipt Date: 20170223
  Transmission Date: 20170428
  Serious: Yes (Death, Hospitalization, Disabling, Other)
  Sender: FDA-Public Use
  Company Number: GB-AMGEN-GBRSP2017013571

PATIENT
  Age: 20 Year
  Sex: Male
  Weight: 90 kg

DRUGS (5)
  1. LENALIDOMIDE [Suspect]
     Active Substance: LENALIDOMIDE
     Indication: PLASMA CELL MYELOMA
     Dosage: UNK
     Route: 065
     Dates: start: 20161129, end: 20161224
  2. CARFILZOMIB [Suspect]
     Active Substance: CARFILZOMIB
     Dosage: 54 MG, DAY 8, 9
     Route: 042
     Dates: start: 20161213, end: 20161214
  3. CARFILZOMIB [Suspect]
     Active Substance: CARFILZOMIB
     Indication: PLASMA CELL MYELOMA
     Dosage: 40 MG, DAY 1,2
     Route: 042
     Dates: start: 20161206, end: 20161207
  4. CARFILZOMIB [Suspect]
     Active Substance: CARFILZOMIB
     Dosage: 54 MG, DAY 15, 16
     Route: 042
     Dates: start: 20161220, end: 20161221
  5. DEXAMETHASONE. [Concomitant]
     Active Substance: DEXAMETHASONE
     Indication: PLASMA CELL MYELOMA
     Dosage: UNK
     Dates: start: 20161129, end: 20161224

REACTIONS (2)
  - Plasma cell myeloma [Fatal]
  - Cerebrovascular accident [Fatal]

NARRATIVE: CASE EVENT DATE: 20161224
